FAERS Safety Report 9192869 (Version 1)
Quarter: 2013Q1

REPORT INFORMATION
  Report Type: Spontaneous
  Country: FR (occurrence: FR)
  Receive Date: 20130327
  Receipt Date: 20130327
  Transmission Date: 20140127
  Serious: Yes (Hospitalization)
  Sender: FDA-Public Use
  Company Number: PHHY2013FR027972

PATIENT
  Age: 80 Year
  Sex: Male

DRUGS (7)
  1. RIMACTANE [Suspect]
     Dosage: 1 DF, QD
     Route: 048
     Dates: start: 20121112, end: 20121205
  2. ZYVOXID [Suspect]
     Dosage: 2 DF, QD
     Route: 048
     Dates: start: 20121110, end: 20121205
  3. ALLOPURINOL [Concomitant]
  4. NAFTIDROFURYL [Concomitant]
  5. GLUCOPHAGE [Concomitant]
  6. HEXAQUINE [Concomitant]
  7. LANTUS [Concomitant]

REACTIONS (6)
  - Drug reaction with eosinophilia and systemic symptoms [Recovered/Resolved]
  - Face oedema [Recovered/Resolved]
  - Tongue oedema [Recovered/Resolved]
  - Rash erythematous [Recovered/Resolved]
  - Rash papular [Recovered/Resolved]
  - Rash pruritic [Recovered/Resolved]
